FAERS Safety Report 9656467 (Version 2)
Quarter: 2014Q1

REPORT INFORMATION
  Report Type: Spontaneous
  Country: AR (occurrence: AR)
  Receive Date: 20131030
  Receipt Date: 20140206
  Transmission Date: 20141002
  Serious: Yes (Other)
  Sender: FDA-Public Use
  Company Number: AR-AMGEN-ARGSP2013076526

PATIENT
  Age: 35 Year
  Sex: Female

DRUGS (4)
  1. ENBREL [Suspect]
     Indication: RHEUMATOID ARTHRITIS
     Dosage: 50 MG, WEEKLY
     Route: 065
     Dates: start: 20060316
  2. VOLTAREN                           /00372302/ [Concomitant]
     Indication: RHEUMATOID ARTHRITIS
     Dosage: UNK
     Route: 048
  3. CORTIPYREN B [Concomitant]
     Dosage: 4 MG, 1X/DAY
     Route: 048
  4. DIOVAN [Concomitant]
     Dosage: UNK
     Route: 048

REACTIONS (1)
  - Arthropathy [Recovered/Resolved]
